FAERS Safety Report 23994165 (Version 1)
Quarter: 2024Q2

REPORT INFORMATION
  Report Type: Spontaneous
  Country: US (occurrence: None)
  Receive Date: 20240618
  Receipt Date: 20240618
  Transmission Date: 20240716
  Serious: No
  Sender: FDA-Public Use
  Company Number: None

PATIENT
  Age: 26 Year
  Sex: Female

DRUGS (1)
  1. GLATOPA [Suspect]
     Active Substance: GLATIRAMER ACETATE
     Dosage: 40 MG/ML THREE TIME A WEEK SUBCUTANEOUS
     Route: 058

REACTIONS (3)
  - Throat tightness [None]
  - Rash [None]
  - Flushing [None]

NARRATIVE: CASE EVENT DATE: 20240613
